FAERS Safety Report 8518035-6 (Version None)
Quarter: 2012Q3

REPORT INFORMATION
  Report Type: 
  Country: None (occurrence: None)
  Receive Date: 20120718
  Receipt Date: 20111123
  Transmission Date: 20120928
  Serious: No
  Sender: FDA-Public Use
  Company Number: US-BRISTOL-MYERS SQUIBB COMPANY-15974876

PATIENT
  Age: 82 Year
  Sex: Female
  Weight: 79 kg

DRUGS (7)
  1. METOPROLOL SUCCINATE [Concomitant]
  2. ADVAIR DISKUS 100/50 [Concomitant]
  3. PRILOSEC [Concomitant]
  4. PAXIL [Concomitant]
  5. COUMADIN [Suspect]
     Indication: ATRIAL FLUTTER
     Dosage: 2 MG ONE DAY, 1 MG THE NEXT / FREQUENCY: ONCE DAILY / START: AROUND MID APRIL.AS DIRECTED
     Route: 048
     Dates: start: 20110601
  6. COUMADIN [Suspect]
     Indication: CEREBROVASCULAR ACCIDENT
     Dosage: 2 MG ONE DAY, 1 MG THE NEXT / FREQUENCY: ONCE DAILY / START: AROUND MID APRIL.AS DIRECTED
     Route: 048
     Dates: start: 20110601
  7. ZOCOR [Concomitant]

REACTIONS (2)
  - URINARY TRACT INFECTION [None]
  - PRURITUS GENERALISED [None]
